FAERS Safety Report 4415223-5 (Version None)
Quarter: 2004Q3

REPORT INFORMATION
  Report Type: 
  Country: None (occurrence: None)
  Receive Date: 20040804
  Receipt Date: 20040723
  Transmission Date: 20050211
  Serious: Yes (Hospitalization)
  Sender: FDA-Public Use
  Company Number: FRPFM-E-20040083

PATIENT
  Age: 81 Year
  Sex: Male

DRUGS (3)
  1. NAVELBINE [Suspect]
     Route: 042
     Dates: start: 20030922, end: 20040319
  2. GEMZAR [Suspect]
  3. PREVISCAN [Suspect]

REACTIONS (13)
  - ANOREXIA [None]
  - ASTERIXIS [None]
  - ASTHENIA [None]
  - CHROMATURIA [None]
  - DYSPNOEA [None]
  - FAECES PALE [None]
  - HEPATITIS [None]
  - HEPATOMEGALY [None]
  - JAUNDICE [None]
  - LUNG DISORDER [None]
  - OEDEMA PERIPHERAL [None]
  - PRURITUS [None]
  - SOMNOLENCE [None]
